FAERS Safety Report 9912435 (Version 2)
Quarter: 2014Q1

REPORT INFORMATION
  Report Type: Report from Study
  Country: DE (occurrence: DE)
  Receive Date: 20140220
  Receipt Date: 20140303
  Transmission Date: 20141002
  Serious: Yes (Hospitalization, Other)
  Sender: FDA-Public Use
  Company Number: DE-BRISTOL-MYERS SQUIBB COMPANY-20221487

PATIENT
  Age: 69 Year
  Sex: Male
  Weight: 56 kg

DRUGS (14)
  1. ERBITUX SOLN FOR INF [Suspect]
     Indication: COLORECTAL CANCER METASTATIC
     Dosage: 21JAN14-28JAN14:250MG/M2,11-FEB-2014 TO ONG.
     Route: 042
     Dates: start: 20140114, end: 20140114
  2. FLUOROURACIL [Concomitant]
     Indication: COLORECTAL CANCER METASTATIC
     Route: 042
     Dates: start: 20140114
  3. IRINOTECAN [Concomitant]
     Indication: COLORECTAL CANCER METASTATIC
     Route: 042
     Dates: start: 20140114
  4. FOLINIC ACID [Concomitant]
     Indication: COLORECTAL CANCER METASTATIC
     Route: 042
     Dates: start: 20140114
  5. ZOMETA [Concomitant]
     Indication: CHEMOTHERAPY
     Route: 042
     Dates: start: 20140123
  6. FORTECORTIN [Concomitant]
     Indication: PREMEDICATION
     Dosage: 15JAN14-28JAN14:ORAL
     Route: 042
     Dates: start: 20140114, end: 20140128
  7. GRANISETRON [Concomitant]
     Indication: PREMEDICATION
     Dosage: 15JAN14-28JAN14:ORAL
     Route: 042
     Dates: start: 20140114, end: 20140128
  8. RANITIC [Concomitant]
     Indication: PREMEDICATION
     Route: 042
     Dates: start: 20140114, end: 20140128
  9. TAVEGIL [Concomitant]
     Indication: PREMEDICATION
     Route: 042
     Dates: start: 20140114, end: 20140128
  10. PASPERTIN [Concomitant]
     Indication: PREMEDICATION
     Dosage: 1DF=60GTT
     Route: 048
     Dates: start: 20140115, end: 20140128
  11. POLAMIDON SUBSTITUTION [Concomitant]
     Indication: PAIN
     Dates: start: 20131009
  12. PALLADON [Concomitant]
     Indication: PAIN
     Dosage: TABS
     Route: 048
     Dates: start: 20131009
  13. PREGABALIN [Concomitant]
     Indication: PAIN
     Route: 048
     Dates: start: 20131009
  14. NIFEDIPINE [Concomitant]
     Route: 048

REACTIONS (1)
  - Tetany [Not Recovered/Not Resolved]
